FAERS Safety Report 9849575 (Version 1)
Quarter: 2013Q4

REPORT INFORMATION
  Report Type: Spontaneous
  Country: US (occurrence: None)
  Receive Date: 20131226
  Receipt Date: 20131226
  Transmission Date: 20140711
  Serious: No
  Sender: FDA-Public Use
  Company Number: PHEH2012US007102

PATIENT
  Age: 10 Year
  Sex: Male

DRUGS (4)
  1. AFINITOR (RAD) UNKNOWN [Suspect]
     Indication: TUBEROUS SCLEROSIS
     Route: 048
     Dates: start: 20120310
  2. DEPAKOTE (VALPROATE SEMISODIUM) [Concomitant]
  3. WELLBATRIN (BUPROPION HYDROCHLORIDE) [Concomitant]
  4. RISPERDAL (RISPERIDONE) [Concomitant]

REACTIONS (4)
  - Oral pain [None]
  - Nasal congestion [None]
  - Ear pain [None]
  - Agitation [None]
